FAERS Safety Report 9175059 (Version 2)
Quarter: 2013Q3

REPORT INFORMATION
  Report Type: Spontaneous
  Country: US (occurrence: US)
  Receive Date: 20130320
  Receipt Date: 20130725
  Transmission Date: 20140515
  Serious: No
  Sender: FDA-Public Use
  Company Number: US-009507513-1303USA007175

PATIENT
  Sex: Female

DRUGS (2)
  1. PEGINTRON [Suspect]
     Indication: HEPATITIS C
     Dosage: REDIPEN
     Route: 065
     Dates: start: 20120125, end: 20130628
  2. REBETOL [Suspect]
     Indication: HEPATITIS C
     Dosage: UNK
     Route: 048
     Dates: start: 20120125, end: 20130628

REACTIONS (6)
  - Musculoskeletal disorder [Unknown]
  - Connective tissue disorder [Unknown]
  - Thrombocytopenia [Unknown]
  - Platelet count decreased [Recovering/Resolving]
  - Headache [Unknown]
  - Arthralgia [Unknown]
